FAERS Safety Report 11202353 (Version 1)
Quarter: 2015Q2

REPORT INFORMATION
  Report Type: Spontaneous
  Country: AU (occurrence: AU)
  Receive Date: 20150619
  Receipt Date: 20150619
  Transmission Date: 20150821
  Serious: Yes (Death)
  Sender: FDA-Public Use
  Company Number: AU-PFIZER INC-2015106222

PATIENT
  Age: 9 Year
  Sex: Male

DRUGS (1)
  1. SUTENT [Suspect]
     Active Substance: SUNITINIB MALATE
     Indication: ADRENOCORTICAL CARCINOMA

REACTIONS (2)
  - Organ failure [Fatal]
  - Product use issue [Unknown]
